FAERS Safety Report 8949817 (Version 3)
Quarter: 2013Q1

REPORT INFORMATION
  Report Type: Report from Study
  Country: FR (occurrence: FR)
  Receive Date: 20121206
  Receipt Date: 20130306
  Transmission Date: 20140127
  Serious: Yes (Death)
  Sender: FDA-Public Use
  Company Number: FR-ROCHE-1161475

PATIENT
  Age: 60 Year
  Sex: Female
  Weight: 70 kg

DRUGS (11)
  1. RITUXIMAB [Suspect]
     Indication: CHRONIC LYMPHOCYTIC LEUKAEMIA
     Route: 041
     Dates: start: 20120418, end: 20120504
  2. RITUXIMAB [Suspect]
     Route: 041
     Dates: start: 20120514
  3. RITUXIMAB [Suspect]
     Route: 041
     Dates: start: 20120611
  4. RITUXIMAB [Suspect]
     Dosage: 16 OR 17 JULY 2012
     Route: 041
     Dates: end: 20120723
  5. FLUDARABINE [Suspect]
     Indication: CHRONIC LYMPHOCYTIC LEUKAEMIA
     Route: 048
     Dates: start: 20120514, end: 20120717
  6. FLUDARABINE [Suspect]
     Route: 048
     Dates: end: 20120723
  7. CYCLOPHOSPHAMIDE [Suspect]
     Indication: CHRONIC LYMPHOCYTIC LEUKAEMIA
     Route: 048
     Dates: start: 20120514, end: 20120717
  8. CYCLOPHOSPHAMIDE [Suspect]
     Route: 048
     Dates: end: 20120723
  9. BACTRIM [Concomitant]
     Dosage: 3 DF PER WEEK
     Route: 048
     Dates: start: 20120418, end: 201207
  10. ZELITREX [Concomitant]
     Route: 048
  11. VALACICLOVIR [Concomitant]
     Dosage: 2 TABLETS DAILY
     Route: 048
     Dates: start: 201206, end: 201207

REACTIONS (1)
  - Richter^s syndrome [Fatal]
